FAERS Safety Report 6241465-2 (Version None)
Quarter: 2009Q2

REPORT INFORMATION
  Report Type: 
  Country: None (occurrence: None)
  Receive Date: 20090623
  Receipt Date: 20030918
  Transmission Date: 20091009
  Serious: Yes (Hospitalization)
  Sender: FDA-Public Use
  Company Number: SE-ROCHE-344040

PATIENT
  Sex: Male
  Weight: 63.2 kg

DRUGS (54)
  1. DACLIZUMAB [Suspect]
     Route: 042
     Dates: start: 20030716, end: 20030716
  2. DACLIZUMAB [Suspect]
     Route: 042
     Dates: start: 20030729, end: 20030910
  3. MYCOPHENOLATE MOFETIL [Suspect]
     Route: 048
     Dates: start: 20030715
  4. MYCOPHENOLATE MOFETIL [Suspect]
     Route: 048
     Dates: start: 20030716, end: 20030723
  5. MYCOPHENOLATE MOFETIL [Suspect]
     Route: 048
     Dates: start: 20030724
  6. MYCOPHENOLATE MOFETIL [Suspect]
     Route: 048
     Dates: start: 20030726
  7. MYCOPHENOLATE MOFETIL [Suspect]
     Route: 048
     Dates: start: 20030727
  8. MYCOPHENOLATE MOFETIL [Suspect]
     Route: 048
     Dates: start: 20030803
  9. MYCOPHENOLATE MOFETIL [Suspect]
     Route: 048
     Dates: start: 20030805
  10. MYCOPHENOLATE MOFETIL [Suspect]
     Route: 048
     Dates: start: 20040929, end: 20050918
  11. MYCOPHENOLATE MOFETIL [Suspect]
     Route: 048
     Dates: start: 20050919
  12. SIROLIMUS [Suspect]
     Route: 048
     Dates: start: 20030717
  13. SIROLIMUS [Suspect]
     Route: 048
     Dates: start: 20030728
  14. SIROLIMUS [Suspect]
     Route: 048
     Dates: start: 20030827, end: 20030925
  15. PREDNISOLONE [Suspect]
     Route: 048
     Dates: start: 20030717
  16. PREDNISOLONE [Suspect]
     Route: 048
     Dates: start: 20040317
  17. PREDNISOLONE [Suspect]
     Route: 048
     Dates: start: 20040706
  18. PREDNISOLONE [Suspect]
     Route: 048
     Dates: start: 20041001, end: 20041201
  19. PREDNISOLONE [Suspect]
     Route: 048
     Dates: start: 20051101
  20. TACROLIMUS [Suspect]
     Route: 048
     Dates: start: 20030925, end: 20040517
  21. TACROLIMUS [Suspect]
     Route: 048
     Dates: start: 20040518
  22. TACROLIMUS [Suspect]
     Route: 048
     Dates: start: 20040716
  23. TACROLIMUS [Suspect]
     Route: 048
     Dates: start: 20041208
  24. TACROLIMUS [Suspect]
     Route: 048
     Dates: start: 20050614
  25. TACROLIMUS [Suspect]
     Route: 048
     Dates: start: 20050919
  26. TACROLIMUS [Suspect]
     Route: 048
     Dates: start: 20051214
  27. TACROLIMUS [Suspect]
     Route: 048
     Dates: start: 20060605
  28. METOPROLOL SUCCINATE [Concomitant]
     Route: 048
     Dates: start: 20030717, end: 20031009
  29. METOPROLOL SUCCINATE [Concomitant]
     Route: 048
     Dates: start: 20031031
  30. METOPROLOL SUCCINATE [Concomitant]
     Route: 048
     Dates: start: 20040115
  31. DOXAZOSIN MESYLATE [Concomitant]
     Route: 048
     Dates: start: 20030719
  32. NIFEDIPINE [Concomitant]
     Route: 048
     Dates: start: 20030717
  33. NIFEDIPINE [Concomitant]
     Route: 048
     Dates: start: 20040115
  34. GANCICLOVIR [Concomitant]
     Route: 048
     Dates: start: 20030719, end: 20040115
  35. ACETYLSALICYLIC ACID [Concomitant]
     Route: 048
     Dates: start: 20030730
  36. ENALAPRILAT [Concomitant]
     Route: 048
     Dates: start: 20030821, end: 20040115
  37. PANTOPRAZOL [Concomitant]
     Route: 048
     Dates: start: 20030721
  38. ISOSORBIDE MONONITRATE [Concomitant]
     Route: 048
     Dates: start: 20030813
  39. DESMOPRESSIN ACETATE [Concomitant]
     Route: 042
     Dates: start: 20030912, end: 20030913
  40. KETOBEMIDON [Concomitant]
     Route: 048
     Dates: start: 20030917
  41. PARACETAMOL [Concomitant]
     Route: 048
     Dates: start: 20030821, end: 20040115
  42. FENTANYL [Concomitant]
     Dosage: ROUTE: TD
     Route: 050
     Dates: start: 20031014
  43. INSULIN [Concomitant]
     Dosage: DOSING UNIT: IU, FREQUENCY: AS NECESSARY
     Route: 058
     Dates: start: 19710101
  44. PREDNISOLONE [Suspect]
     Route: 042
     Dates: start: 20030716, end: 20030716
  45. CEFOTAXIM [Concomitant]
     Route: 042
     Dates: start: 20030716
  46. DEXTROPROPOXYPHENE [Concomitant]
     Dosage: DRUG REPORTED: DEXTROPROPOXYPHEN
     Route: 048
     Dates: start: 20030821, end: 20040115
  47. FLOXACILLIN SODIUM [Concomitant]
     Route: 048
     Dates: start: 20040201, end: 20040317
  48. HYDROCORTISON [Suspect]
     Route: 042
     Dates: start: 20031014
  49. ISOSORBID [Concomitant]
     Route: 048
     Dates: start: 20030813, end: 20031001
  50. METHYLPREDNISOLONE [Suspect]
     Route: 042
     Dates: start: 20030716
  51. METHYLPREDNISOLONE [Suspect]
     Route: 042
     Dates: start: 20030912
  52. PENTAMIDIN [Concomitant]
     Dosage: ROUTE: IH
     Route: 050
     Dates: start: 20030722
  53. PENTAMIDIN [Concomitant]
     Route: 050
     Dates: start: 20030821
  54. PENTAMIDIN [Concomitant]
     Route: 050
     Dates: start: 20030925

REACTIONS (7)
  - BLOOD CREATININE INCREASED [None]
  - CRYPTOCOCCOSIS [None]
  - DYSPNOEA [None]
  - OEDEMA PERIPHERAL [None]
  - OESOPHAGEAL CANDIDIASIS [None]
  - PHARYNGITIS [None]
  - WEIGHT INCREASED [None]
